FAERS Safety Report 12941131 (Version 1)
Quarter: 2016Q4

REPORT INFORMATION
  Report Type: Spontaneous
  Country: US (occurrence: US)
  Receive Date: 20161115
  Receipt Date: 20161115
  Transmission Date: 20170207
  Serious: Yes (Hospitalization)
  Sender: FDA-Public Use
  Company Number: None

PATIENT
  Age: 66 Year
  Sex: Female
  Weight: 97 kg

DRUGS (12)
  1. COREG [Concomitant]
     Active Substance: CARVEDILOL
  2. FLONASE [Concomitant]
     Active Substance: FLUTICASONE PROPIONATE
  3. GLIMEPIRIDE. [Suspect]
     Active Substance: GLIMEPIRIDE
     Indication: DIABETES MELLITUS
     Dosage: GLIMEPIRIDE - DATES OF USE [RECENT] SSI
     Route: 048
  4. AMLODIPINE [Concomitant]
     Active Substance: AMLODIPINE BESYLATE
  5. FIORICET [Concomitant]
     Active Substance: ACETAMINOPHEN\BUTALBITAL\CAFFEINE
  6. PLAVIX [Concomitant]
     Active Substance: CLOPIDOGREL BISULFATE
  7. LASIX [Concomitant]
     Active Substance: FUROSEMIDE
  8. LIPITOR [Concomitant]
     Active Substance: ATORVASTATIN CALCIUM
  9. COLACE [Concomitant]
     Active Substance: DOCUSATE SODIUM
  10. NEURONTI [Concomitant]
  11. HUMALOG [Suspect]
     Active Substance: INSULIN LISPRO
     Indication: DIABETES MELLITUS
     Dosage: HUMALOG - DOSE [SSI] - SUBCUTANEOUS - DATES OF USE [CHRONIC]
     Route: 058
  12. ASPIRIN. [Concomitant]
     Active Substance: ASPIRIN

REACTIONS (5)
  - Acute kidney injury [None]
  - Hypoglycaemia [None]
  - Hypophagia [None]
  - Tooth disorder [None]
  - Self-medication [None]

NARRATIVE: CASE EVENT DATE: 20151219
